FAERS Safety Report 23056960 (Version 1)
Quarter: 2023Q4

REPORT INFORMATION
  Report Type: Spontaneous
  Country: FR (occurrence: FR)
  Receive Date: 20231012
  Receipt Date: 20231012
  Transmission Date: 20240110
  Serious: Yes (Hospitalization, Other)
  Sender: FDA-Public Use
  Company Number: FR-DENTSPLY-2023SCDP000338

PATIENT
  Age: 42 Year
  Sex: Female
  Weight: 67 kg

DRUGS (3)
  1. EPINEPHRINE BITARTRATE\LIDOCAINE HYDROCHLORIDE [Suspect]
     Active Substance: EPINEPHRINE BITARTRATE\LIDOCAINE HYDROCHLORIDE
     Indication: Local anaesthesia
     Dosage: 5 MILLILITER
     Route: 019
     Dates: start: 20230706, end: 20230706
  2. NITROGEN [Suspect]
     Active Substance: NITROGEN
     Indication: Analgesic therapy
     Dosage: UNK
     Dates: start: 20230706, end: 20230706
  3. LANSOPRAZOLE [Concomitant]
     Active Substance: LANSOPRAZOLE
     Indication: Burn oesophageal
     Dosage: 15 MILLIGRAM
     Route: 048
     Dates: start: 20230706, end: 20230706

REACTIONS (4)
  - Amaurosis fugax [Recovered/Resolved]
  - Hypertension [Recovered/Resolved]
  - Hyperventilation [Recovered/Resolved]
  - Tremor [Recovered/Resolved]

NARRATIVE: CASE EVENT DATE: 20230706
